FAERS Safety Report 8359997-X (Version None)
Quarter: 2012Q2

REPORT INFORMATION
  Report Type: 
  Country: None (occurrence: None)
  Receive Date: 20120515
  Receipt Date: 20120511
  Transmission Date: 20120825
  Serious: Yes (Life-Threatening, Hospitalization, Other)
  Sender: FDA-Public Use
  Company Number: PHFR2011GB05706

PATIENT
  Sex: Male

DRUGS (3)
  1. CLOZARIL [Suspect]
     Dosage: 300 MG, BID
  2. CLOZARIL [Suspect]
     Dosage: 700 MG, (200 MG AM AND 500MG)
     Dates: start: 20120512
  3. CLOZARIL [Suspect]
     Indication: SCHIZOPHRENIA
     Dosage: 600 MG/DAY
     Route: 048
     Dates: start: 20100908

REACTIONS (8)
  - PARAPLEGIA [None]
  - OSTEOMYELITIS [None]
  - INTENTIONAL SELF-INJURY [None]
  - INJURY [None]
  - SUICIDE ATTEMPT [None]
  - SPINAL FRACTURE [None]
  - SEPSIS [None]
  - PLATELET COUNT DECREASED [None]
